FAERS Safety Report 5616714-1 (Version None)
Quarter: 2008Q1

REPORT INFORMATION
  Report Type: 
  Country: None (occurrence: None)
  Receive Date: 20080204
  Receipt Date: 20080130
  Transmission Date: 20080703
  Serious: Yes (Hospitalization)
  Sender: FDA-Public Use
  Company Number: 2007BI022326

PATIENT
  Age: 53 Year
  Sex: Female
  Weight: 66 kg

DRUGS (3)
  1. AVONEX [Suspect]
     Indication: MULTIPLE SCLEROSIS
     Dosage: 30 UG;QW; IM
     Route: 030
     Dates: start: 20001101
  2. L-THYROXIN [Concomitant]
  3. IBUPROFEN [Concomitant]

REACTIONS (16)
  - CROHN'S DISEASE [None]
  - GAIT DISTURBANCE [None]
  - INTERVERTEBRAL DISC PROTRUSION [None]
  - MEAN CELL VOLUME INCREASED [None]
  - MENOPAUSAL SYMPTOMS [None]
  - MONOCYTE PERCENTAGE INCREASED [None]
  - NASAL CYST [None]
  - OSTEOARTHRITIS [None]
  - PAIN [None]
  - PARESIS [None]
  - PLATELET COUNT INCREASED [None]
  - PLATELET DISORDER [None]
  - RESTLESS LEGS SYNDROME [None]
  - RHEUMATOID ARTHRITIS [None]
  - SPINAL DISORDER [None]
  - TENDON DISORDER [None]
